FAERS Safety Report 6306227-6 (Version None)
Quarter: 2009Q3

REPORT INFORMATION
  Report Type: 
  Country: None (occurrence: None)
  Receive Date: 20090810
  Receipt Date: 20090723
  Transmission Date: 20100115
  Serious: Yes (Other)
  Sender: FDA-Public Use
  Company Number: 2008-04337

PATIENT
  Age: 61 Year
  Sex: Female

DRUGS (2)
  1. VELCADE [Suspect]
     Indication: MULTIPLE MYELOMA
     Dosage: 1.5 MG, INTRAVENOUS,  INTRAVENOUS
     Route: 042
  2. DEXAMETHASONE [Concomitant]

REACTIONS (18)
  - ABDOMINAL PAIN [None]
  - DECREASED APPETITE [None]
  - DIARRHOEA [None]
  - DIZZINESS [None]
  - DYSGEUSIA [None]
  - HEADACHE [None]
  - INSOMNIA [None]
  - MALAISE [None]
  - NAUSEA [None]
  - NEUROPATHY PERIPHERAL [None]
  - NEUTROPENIA [None]
  - OEDEMA PERIPHERAL [None]
  - PRURITUS [None]
  - PYREXIA [None]
  - RASH [None]
  - SOMNOLENCE [None]
  - THROMBOCYTOPENIA [None]
  - VOMITING [None]
